FAERS Safety Report 7018952-2 (Version None)
Quarter: 2010Q3

REPORT INFORMATION
  Report Type: 
  Country: None (occurrence: None)
  Receive Date: 20100928
  Receipt Date: 20100914
  Transmission Date: 20110219
  Serious: Yes (Death)
  Sender: FDA-Public Use
  Company Number: GB-MYLANLABS-2010S1014347

PATIENT
  Sex: Female

DRUGS (3)
  1. DOXYCYCLINE [Suspect]
     Indication: INFECTION
     Route: 048
     Dates: start: 20090422, end: 20100422
  2. DOXYCYCLINE [Suspect]
     Route: 048
     Dates: start: 20090423
  3. LANTUS [Suspect]
     Indication: DIABETES MELLITUS
     Route: 058
     Dates: start: 20060101

REACTIONS (2)
  - DRUG INTERACTION [None]
  - HYPOGLYCAEMIA [None]
